FAERS Safety Report 23308119 (Version 1)
Quarter: 2023Q4

REPORT INFORMATION
  Report Type: Spontaneous
  Country: CA (occurrence: CA)
  Receive Date: 20231218
  Receipt Date: 20231218
  Transmission Date: 20240110
  Serious: Yes (Other)
  Sender: FDA-Public Use
  Company Number: CA-PFIZER INC-202300444229

PATIENT
  Age: 43 Year
  Sex: Female

DRUGS (5)
  1. METHOTREXATE SODIUM [Suspect]
     Active Substance: METHOTREXATE SODIUM
     Indication: Rheumatoid arthritis
     Dosage: 10 MG, WEEKLY, 2.5MG X 4 TABLETS WEEKLY (1 DF)
     Route: 048
     Dates: start: 2023
  2. SULFASALAZINE [Suspect]
     Active Substance: SULFASALAZINE
     Indication: Rheumatoid arthritis
     Dosage: 1000 MG, 2X/DAY (2 X 500MG BID)
     Dates: start: 2010
  3. FERAMAX [Concomitant]
     Active Substance: IRON\POLYSACCHARIDES
     Indication: Iron deficiency anaemia
     Dosage: 300 MG, 1X/DAY
  4. PLAQUENIL [Concomitant]
     Active Substance: HYDROXYCHLOROQUINE SULFATE
     Dosage: UNK
  5. VIMOVO [Concomitant]
     Active Substance: ESOMEPRAZOLE MAGNESIUM\NAPROXEN
     Dosage: UNK

REACTIONS (3)
  - Rheumatoid arthritis [Not Recovered/Not Resolved]
  - Pulmonary fibrosis [Unknown]
  - Joint space narrowing [Not Recovered/Not Resolved]

NARRATIVE: CASE EVENT DATE: 20230101
